FAERS Safety Report 4693179-8 (Version None)
Quarter: 2005Q2

REPORT INFORMATION
  Report Type: 
  Country: None (occurrence: None)
  Receive Date: 20050311
  Receipt Date: 20050311
  Transmission Date: 20051028
  Serious: Yes (Other)
  Sender: FDA-Public Use
  Company Number: None

PATIENT
  Sex: Female

DRUGS (2)
  1. XANAX [Suspect]
     Indication: ANXIETY
     Dosage: .25 MG TID
  2. XANAX [Suspect]
     Indication: DEPRESSION
     Dosage: .25 MG TID

REACTIONS (2)
  - DYSPNOEA [None]
  - URTICARIA [None]
